FAERS Safety Report 4843917-6 (Version None)
Quarter: 2005Q4

REPORT INFORMATION
  Report Type: 
  Country: None (occurrence: None)
  Receive Date: 20051202
  Receipt Date: 20050418
  Transmission Date: 20060501
  Serious: No
  Sender: FDA-Public Use
  Company Number: US-GLAXOSMITHKLINE-A0554492A

PATIENT
  Age: 15 Year
  Sex: Female

DRUGS (1)
  1. AUGMENTIN [Suspect]
     Indication: ACUTE SINUSITIS
     Dosage: 500MG TWICE PER DAY
     Route: 048

REACTIONS (2)
  - HAEMOPHILUS INFECTION [None]
  - TENDONITIS [None]
